FAERS Safety Report 6042058-2 (Version None)
Quarter: 2009Q1

REPORT INFORMATION
  Report Type: 
  Country: None (occurrence: None)
  Receive Date: 20090116
  Receipt Date: 20090113
  Transmission Date: 20090719
  Serious: Yes (Hospitalization)
  Sender: FDA-Public Use
  Company Number: US-ASTRAZENECA-2009UW01046

PATIENT
  Age: 79 Year
  Sex: Female
  Weight: 63.5 kg

DRUGS (6)
  1. NEXIUM [Suspect]
     Indication: GASTRIC ULCER HAEMORRHAGE
     Route: 048
     Dates: start: 20030101
  2. NEXIUM [Suspect]
     Route: 048
  3. LASIX [Concomitant]
  4. POTASSIUM CHLORIDE [Concomitant]
     Dosage: 10 MEQ 8 TABS QD
  5. LIPITOR [Concomitant]
  6. MULTI-VITAMINS [Concomitant]

REACTIONS (2)
  - HIP FRACTURE [None]
  - ULCER [None]
